FAERS Safety Report 21768694 (Version 1)
Quarter: 2022Q4

REPORT INFORMATION
  Report Type: Spontaneous
  Country: US (occurrence: None)
  Receive Date: 20221222
  Receipt Date: 20221222
  Transmission Date: 20230113
  Serious: No
  Sender: FDA-Public Use
  Company Number: None

PATIENT
  Age: 72 Year
  Sex: Male
  Weight: 69.49 kg

DRUGS (26)
  1. INLYTA [Suspect]
     Active Substance: AXITINIB
     Indication: Renal cancer
     Dosage: FREQUENCY : TWICE A DAY;?
     Route: 048
     Dates: start: 202204
  2. ALBUTEROL [Concomitant]
     Active Substance: ALBUTEROL
  3. AMLODIPINE [Concomitant]
     Active Substance: AMLODIPINE BESYLATE
  4. ATORVASTATIN [Concomitant]
     Active Substance: ATORVASTATIN
  5. CARVEDILOL [Concomitant]
     Active Substance: CARVEDILOL
  6. CIALIS [Concomitant]
     Active Substance: TADALAFIL
  7. CIMETIDINE [Concomitant]
     Active Substance: CIMETIDINE
  8. COENZYME Q10 [Concomitant]
     Active Substance: DIETARY SUPPLEMENT\UBIDECARENONE
  9. ATROPINE\DIPHENOXYLATE [Concomitant]
     Active Substance: ATROPINE\DIPHENOXYLATE
  10. ELIQUIS [Concomitant]
     Active Substance: APIXABAN
  11. FLUTICASONE [Concomitant]
     Active Substance: FLUTICASONE
  12. GARLIC [Concomitant]
     Active Substance: GARLIC
  13. ALBUTEROL\IPRATROPIUM [Concomitant]
     Active Substance: ALBUTEROL\IPRATROPIUM
  14. LIDOCAINE [Concomitant]
     Active Substance: LIDOCAINE
  15. LISINOPRIL AND HYDROCHLOROTHIAZIDE [Concomitant]
     Active Substance: HYDROCHLOROTHIAZIDE\LISINOPRIL
  16. LORATADINE [Concomitant]
     Active Substance: LORATADINE
  17. MONTELUKAST [Concomitant]
     Active Substance: MONTELUKAST SODIUM
  18. VITAMINS [Concomitant]
     Active Substance: VITAMINS
  19. ONDANSETRON [Concomitant]
     Active Substance: ONDANSETRON
  20. PRILOSEC [Concomitant]
     Active Substance: OMEPRAZOLE MAGNESIUM
  21. SILEDNAFIL CITRATE [Concomitant]
  22. SPIRIVA [Concomitant]
     Active Substance: TIOTROPIUM BROMIDE MONOHYDRATE
  23. SYMBICORT [Concomitant]
     Active Substance: BUDESONIDE\FORMOTEROL FUMARATE DIHYDRATE
  24. TAGAMET HB [Concomitant]
     Active Substance: CIMETIDINE
  25. TAMSULOSIN [Concomitant]
     Active Substance: TAMSULOSIN
  26. VITAMIN D [Concomitant]
     Active Substance: VITAMIN D NOS

REACTIONS (1)
  - Full blood count decreased [None]
